FAERS Safety Report 4955520-8 (Version None)
Quarter: 2006Q1

REPORT INFORMATION
  Report Type: 
  Country: None (occurrence: None)
  Receive Date: 20060328
  Receipt Date: 20060208
  Transmission Date: 20060701
  Serious: Yes (Other)
  Sender: FDA-Public Use
  Company Number: 2006GB00240

PATIENT
  Age: 69 Year
  Sex: Female

DRUGS (9)
  1. OMEPRAZOLE [Suspect]
     Indication: HIATUS HERNIA
     Route: 048
     Dates: start: 20000101, end: 20051001
  2. TEMAZEPAM [Concomitant]
     Indication: INSOMNIA
     Route: 048
  3. EZETIMIBE [Concomitant]
     Indication: BLOOD CHOLESTEROL INCREASED
     Route: 048
  4. TILDIEM LA [Concomitant]
     Indication: ANGINA PECTORIS
     Route: 048
  5. THYROXINE [Concomitant]
     Indication: HYPOTHYROIDISM
     Route: 048
  6. ESTRADIOL [Concomitant]
     Indication: HORMONE REPLACEMENT THERAPY
  7. CLOPIDOGREL [Concomitant]
     Indication: CARDIAC DISORDER
     Route: 048
  8. FRUMIL [Concomitant]
     Indication: FLUID RETENTION
  9. CO-DYDRAMOL [Concomitant]
     Indication: PAIN

REACTIONS (3)
  - DIVERTICULUM INTESTINAL [None]
  - GASTRIC ANTRAL VASCULAR ECTASIA [None]
  - IRON DEFICIENCY ANAEMIA [None]
